FAERS Safety Report 9834527 (Version 1)
Quarter: 2014Q1

REPORT INFORMATION
  Report Type: Spontaneous
  Country: BE (occurrence: BE)
  Receive Date: 20140122
  Receipt Date: 20140122
  Transmission Date: 20141002
  Serious: Yes (Hospitalization, Other)
  Sender: FDA-Public Use
  Company Number: BE-UCBSA-108913

PATIENT
  Sex: 0

DRUGS (6)
  1. KEPPRA [Suspect]
     Indication: EPILEPSY
     Route: 048
     Dates: start: 2000
  2. BRIVARACETAM [Concomitant]
     Indication: EPILEPSY
     Dosage: DOSE: 6 PER DAY
     Route: 048
     Dates: start: 2004
  3. BETASERC [Concomitant]
     Indication: MENIERE^S DISEASE
     Route: 048
     Dates: start: 2008
  4. LAMICTAL [Concomitant]
     Indication: EPILEPSY
     Route: 048
     Dates: start: 2000
  5. TRAZOLAN [Concomitant]
     Indication: INSOMNIA
     Route: 048
     Dates: start: 2001
  6. SALAZOPYRINE [Concomitant]
     Indication: RHEUMATOID ARTHRITIS
     Route: 048
     Dates: start: 2010

REACTIONS (3)
  - Dental caries [Not Recovered/Not Resolved]
  - Aptyalism [Unknown]
  - Overdose [Not Recovered/Not Resolved]
